FAERS Safety Report 20506061 (Version 1)
Quarter: 2022Q1

REPORT INFORMATION
  Report Type: Spontaneous
  Country: US (occurrence: US)
  Receive Date: 20220223
  Receipt Date: 20220223
  Transmission Date: 20220423
  Serious: No
  Sender: FDA-Public Use
  Company Number: US-UNITED THERAPEUTICS-UNT-2022-003686

PATIENT
  Sex: Female

DRUGS (2)
  1. REMODULIN [Suspect]
     Active Substance: TREPROSTINIL
     Indication: Pulmonary arterial hypertension
     Dosage: UNK, CONTINUING
     Route: 058
     Dates: start: 20190916
  2. REMODULIN [Suspect]
     Active Substance: TREPROSTINIL
     Dosage: 0.1099 ?G/KG, CONTINUING
     Route: 058

REACTIONS (2)
  - Flushing [Unknown]
  - Pain in extremity [Unknown]
